FAERS Safety Report 4874529-6 (Version None)
Quarter: 2006Q1

REPORT INFORMATION
  Report Type: 
  Country: None (occurrence: None)
  Receive Date: 20060104
  Receipt Date: 20060104
  Transmission Date: 20060701
  Serious: Yes (Hospitalization)
  Sender: FDA-Public Use
  Company Number: None

PATIENT
  Age: 74 Year
  Sex: Female
  Weight: 42.6 kg

DRUGS (4)
  1. CEFEPIME 1 GM IV Q 12 HRS X 3 WEEKS [Suspect]
     Indication: LUNG INFECTION PSEUDOMONAL
     Dosage: 1 GRAM  EVERY 12 HOURS INTRAVENOUS
     Route: 042
     Dates: start: 20051107, end: 20051128
  2. CEFEPIME 1 GM IV Q 12 HRS X 3 WEEKS [Suspect]
     Indication: PATHOGEN RESISTANCE
     Dosage: 1 GRAM  EVERY 12 HOURS INTRAVENOUS
     Route: 042
     Dates: start: 20051107, end: 20051128
  3. METRONIDOZOLE [Concomitant]
  4. ALETAZOLOMIDE [Concomitant]

REACTIONS (3)
  - CHILLS [None]
  - PYREXIA [None]
  - WHITE BLOOD CELL COUNT INCREASED [None]
